FAERS Safety Report 9868447 (Version 1)
Quarter: 2014Q1

REPORT INFORMATION
  Report Type: Spontaneous
  Country: US (occurrence: US)
  Receive Date: 20140204
  Receipt Date: 20140204
  Transmission Date: 20141002
  Serious: Yes (Hospitalization)
  Sender: FDA-Public Use
  Company Number: US-B.I. PHARMACEUTICALS,INC./RIDGEFIELD-2014-BI-04754BP

PATIENT
  Age: 72 Year
  Sex: Male
  Weight: 107 kg

DRUGS (1)
  1. PRADAXA [Suspect]
     Indication: ATRIAL FIBRILLATION
     Route: 048

REACTIONS (2)
  - Cardiac tamponade [Not Recovered/Not Resolved]
  - Renal failure [Unknown]
